FAERS Safety Report 7166756-2 (Version None)
Quarter: 2010Q4

REPORT INFORMATION
  Report Type: 
  Country: None (occurrence: None)
  Receive Date: 20101213
  Receipt Date: 20101213
  Transmission Date: 20110411
  Serious: Yes (Other)
  Sender: FDA-Public Use
  Company Number: None

PATIENT
  Age: 47 Year
  Sex: Female
  Weight: 65.318 kg

DRUGS (1)
  1. ROLAIDS CHEWABLE TAB [Suspect]
     Indication: DYSPEPSIA
     Dosage: 1 TWICE A DAY PO
     Route: 048
     Dates: start: 20101204, end: 20101208

REACTIONS (5)
  - GINGIVAL DISORDER [None]
  - GINGIVAL PAIN [None]
  - GINGIVAL SWELLING [None]
  - SKIN IRRITATION [None]
  - SWELLING FACE [None]
